FAERS Safety Report 20030793 (Version 3)
Quarter: 2022Q4

REPORT INFORMATION
  Report Type: Report from Study
  Country: US (occurrence: US)
  Receive Date: 20211103
  Receipt Date: 20221114
  Transmission Date: 20230113
  Serious: Yes (Other)
  Sender: FDA-Public Use
  Company Number: US-TAKEDA-2021TUS035078

PATIENT
  Sex: Male

DRUGS (1)
  1. VEDOLIZUMAB [Suspect]
     Active Substance: VEDOLIZUMAB
     Indication: Crohn^s disease
     Dosage: 300 MILLIGRAM
     Route: 042

REACTIONS (9)
  - Crohn^s disease [Unknown]
  - Tooth abscess [Unknown]
  - Dehydration [Unknown]
  - Malaise [Unknown]
  - Abdominal pain upper [Unknown]
  - Illness [Unknown]
  - Muscle spasms [Unknown]
  - Abdominal distension [Unknown]
  - Headache [Unknown]
